FAERS Safety Report 23981370 (Version 1)
Quarter: 2024Q2

REPORT INFORMATION
  Report Type: Spontaneous
  Country: US (occurrence: None)
  Receive Date: 20240614
  Receipt Date: 20240614
  Transmission Date: 20240715
  Serious: Yes (Other)
  Sender: FDA-Public Use
  Company Number: None

PATIENT
  Age: 42 Year
  Sex: Female
  Weight: 108 kg

DRUGS (15)
  1. VRAYLAR [Suspect]
     Active Substance: CARIPRAZINE
     Indication: Depression
  2. SERTRALINE [Concomitant]
     Active Substance: SERTRALINE HYDROCHLORIDE
  3. VYVANSE [Concomitant]
     Active Substance: LISDEXAMFETAMINE DIMESYLATE
  4. PRIMIDONE [Concomitant]
     Active Substance: PRIMIDONE
  5. LEVOTHYROXINE [Concomitant]
     Active Substance: LEVOTHYROXINE\LEVOTHYROXINE SODIUM
  6. COLESTIPOL [Concomitant]
     Active Substance: COLESTIPOL
  7. CLONAZEPAM [Concomitant]
     Active Substance: CLONAZEPAM
  8. PROGESTERONE [Concomitant]
     Active Substance: PROGESTERONE
  9. ONDANSETRON [Concomitant]
     Active Substance: ONDANSETRON
  10. HYOSCYAMINE [Concomitant]
     Active Substance: HYOSCYAMINE
  11. COLLAGEN [Concomitant]
     Active Substance: COLLAGEN
  12. ASCORBIC ACID\IRON [Concomitant]
     Active Substance: ASCORBIC ACID\IRON
  13. VITAMINS [Concomitant]
     Active Substance: VITAMINS
  14. MAGNESIUM GLYCINATE [Concomitant]
     Active Substance: MAGNESIUM GLYCINATE
  15. VITAMIN B COMPLEX [Concomitant]
     Active Substance: CYANOCOBALAMIN\DEXPANTHENOL\NIACINAMIDE\PYRIDOXINE HYDROCHLORIDE\RIBOFLAVIN 5^-PHOSPHATE SODIUM\THIA

REACTIONS (7)
  - Agitation [None]
  - Therapy cessation [None]
  - Impaired work ability [None]
  - Memory impairment [None]
  - Hypersomnia [None]
  - Hypophagia [None]
  - Abnormal behaviour [None]

NARRATIVE: CASE EVENT DATE: 20231203
